FAERS Safety Report 10008412 (Version 1)
Quarter: 2014Q1

REPORT INFORMATION
  Report Type: Spontaneous
  Country: US (occurrence: US)
  Receive Date: 20140313
  Receipt Date: 20140313
  Transmission Date: 20141002
  Serious: Yes (Hospitalization)
  Sender: FDA-Public Use
  Company Number: US-GILEAD-2013-0077237

PATIENT
  Age: 69 Year
  Sex: Female
  Weight: 67.12 kg

DRUGS (2)
  1. LETAIRIS [Suspect]
     Indication: PRODUCT USED FOR UNKNOWN INDICATION
     Dosage: 5 MG, UNK
     Dates: start: 20100205, end: 201306
  2. LETAIRIS [Suspect]
     Dosage: UNK
     Dates: start: 20130608

REACTIONS (1)
  - Fluid retention [Recovered/Resolved]
